FAERS Safety Report 6507559-9 (Version None)
Quarter: 2009Q4

REPORT INFORMATION
  Report Type: 
  Country: None (occurrence: None)
  Receive Date: 20091216
  Receipt Date: 20091214
  Transmission Date: 20100525
  Serious: Yes (Life-Threatening)
  Sender: FDA-Public Use
  Company Number: SP02691

PATIENT
  Age: 30 Year
  Sex: Female
  Weight: 58.6501 kg

DRUGS (1)
  1. MOVIPREP [Suspect]
     Indication: BOWEL PREPARATION
     Dosage: ORAL
     Route: 048
     Dates: start: 20091102, end: 20091102

REACTIONS (2)
  - DRUG HYPERSENSITIVITY [None]
  - PARAESTHESIA [None]
